FAERS Safety Report 17877499 (Version 2)
Quarter: 2020Q2

REPORT INFORMATION
  Report Type: Report from Study
  Country: AT (occurrence: AT)
  Receive Date: 20200609
  Receipt Date: 20200612
  Transmission Date: 20200714
  Serious: Yes (Other)
  Sender: FDA-Public Use
  Company Number: AT-AMGEN-AUTNI2020090125

PATIENT
  Age: 56 Year
  Sex: Male
  Weight: 102 kg

DRUGS (4)
  1. PANITUMUMAB [Suspect]
     Active Substance: PANITUMUMAB
     Dosage: 642 MILLIGRAM
     Route: 042
  2. PREGABALIN. [Concomitant]
     Active Substance: PREGABALIN
     Dosage: 100 MILLIGRAM
     Route: 048
     Dates: start: 2019
  3. PREGABALIN. [Concomitant]
     Active Substance: PREGABALIN
     Dosage: 100 MILLIGRAM, BID
     Route: 042
     Dates: start: 20200508
  4. PANITUMUMAB [Suspect]
     Active Substance: PANITUMUMAB
     Indication: COLORECTAL CANCER METASTATIC
     Dosage: 50 MILLIGRAM
     Route: 042
     Dates: start: 20190708

REACTIONS (2)
  - Polyneuropathy [Recovered/Resolved]
  - Rash [Unknown]

NARRATIVE: CASE EVENT DATE: 20200508
